FAERS Safety Report 4649236-5 (Version None)
Quarter: 2005Q2

REPORT INFORMATION
  Report Type: 
  Country: None (occurrence: None)
  Receive Date: 20050429
  Receipt Date: 20050419
  Transmission Date: 20051028
  Serious: Yes (Other)
  Sender: FDA-Public Use
  Company Number: US-JNJFOC-20050404594

PATIENT
  Sex: Female
  Weight: 104.78 kg

DRUGS (10)
  1. REMICADE [Suspect]
     Route: 042
  2. REMICADE [Suspect]
     Indication: RHEUMATOID ARTHRITIS
     Route: 042
  3. METHOTREXATE [Concomitant]
  4. FOSAMAX [Concomitant]
  5. PREVACID [Concomitant]
  6. TOPROL-XL [Concomitant]
  7. SYNTHROID [Concomitant]
  8. FOLIC ACID [Concomitant]
  9. IBUPROFEN [Concomitant]
  10. INDOCIN [Concomitant]

REACTIONS (2)
  - PLEURAL EFFUSION [None]
  - SEROSITIS [None]
